FAERS Safety Report 4680675-2 (Version None)
Quarter: 2005Q2

REPORT INFORMATION
  Report Type: 
  Country: None (occurrence: None)
  Receive Date: 20050603
  Receipt Date: 20050428
  Transmission Date: 20051028
  Serious: Yes (Life-Threatening, Hospitalization)
  Sender: FDA-Public Use
  Company Number: 2005UW06647

PATIENT
  Age: 536 Month
  Sex: Female
  Weight: 80.5 kg

DRUGS (5)
  1. SEROQUEL [Suspect]
     Route: 048
     Dates: start: 20050401
  2. FLUOXETINE [Concomitant]
     Indication: DEPRESSION
     Route: 048
     Dates: start: 20040907, end: 20050407
  3. RISPERDAL [Concomitant]
     Indication: BIPOLAR DISORDER
     Route: 048
     Dates: start: 20030501
  4. CLONAZEPAM [Concomitant]
     Indication: ANXIETY
     Route: 048
     Dates: start: 20030611
  5. AMBIEN [Concomitant]
     Indication: INSOMNIA
     Route: 048
     Dates: start: 20040501

REACTIONS (7)
  - BRAIN DAMAGE [None]
  - INTENTIONAL MISUSE [None]
  - LOSS OF CONSCIOUSNESS [None]
  - RESPIRATORY ARREST [None]
  - STATUS EPILEPTICUS [None]
  - SUICIDE ATTEMPT [None]
  - UNRESPONSIVE TO VERBAL STIMULI [None]
